FAERS Safety Report 20992677 (Version 1)
Quarter: 2022Q2

REPORT INFORMATION
  Report Type: Spontaneous
  Country: US (occurrence: None)
  Receive Date: 20220621
  Receipt Date: 20220621
  Transmission Date: 20220721
  Serious: No
  Sender: FDA-Public Use
  Company Number: None

PATIENT
  Age: 58 Year
  Sex: Female
  Weight: 51.75 kg

DRUGS (5)
  1. PROGESTERONE [Suspect]
     Active Substance: PROGESTERONE
     Indication: Menopause
     Dosage: OTHER QUANTITY : 1 CAPSULE(S);?FREQUENCY : AT BEDTIME;?
     Route: 048
     Dates: start: 20220618, end: 20220620
  2. ESTRADIOL [Concomitant]
  3. PROGESTERONE [Concomitant]
     Active Substance: PROGESTERONE
  4. CENTRUM [Concomitant]
  5. FISH OIL [Concomitant]

REACTIONS (6)
  - Product quality issue [None]
  - Hot flush [None]
  - Feeling cold [None]
  - Insomnia [None]
  - Product measured potency issue [None]
  - Product substitution issue [None]

NARRATIVE: CASE EVENT DATE: 20220618
